FAERS Safety Report 16514352 (Version 2)
Quarter: 2019Q3

REPORT INFORMATION
  Report Type: Report from Study
  Country: None (occurrence: CA)
  Receive Date: 20190702
  Receipt Date: 20190821
  Transmission Date: 20191004
  Serious: Yes (Other)
  Sender: FDA-Public Use
  Company Number: CA-ABBVIE-19K-028-2833015-00

PATIENT
  Age: 73 Year
  Sex: Male
  Weight: 83.4 kg

DRUGS (1)
  1. HUMIRA [Suspect]
     Active Substance: ADALIMUMAB
     Indication: HIDRADENITIS
     Route: 058
     Dates: start: 20190612

REACTIONS (3)
  - Scrotal cyst [Unknown]
  - Wrong technique in product usage process [Unknown]
  - Lens dislocation [Unknown]

NARRATIVE: CASE EVENT DATE: 2019
